FAERS Safety Report 24859853 (Version 1)
Quarter: 2025Q1

REPORT INFORMATION
  Report Type: Spontaneous
  Country: CA (occurrence: CA)
  Receive Date: 20250119
  Receipt Date: 20250119
  Transmission Date: 20250409
  Serious: Yes (Other)
  Sender: RK PHARMA
  Company Number: CA-RK PHARMA, INC-20250100003

PATIENT

DRUGS (2)
  1. MITOMYCIN [Suspect]
     Active Substance: MITOMYCIN
     Route: 057
  2. LIDOCAINE [Concomitant]
     Active Substance: LIDOCAINE

REACTIONS (3)
  - Eyelid ptosis [Recovered/Resolved]
  - Ophthalmoplegia [Recovered/Resolved]
  - Osteonecrosis [Recovered/Resolved]
